FAERS Safety Report 16937268 (Version 2)
Quarter: 2019Q4

REPORT INFORMATION
  Report Type: Spontaneous
  Country: CH (occurrence: CH)
  Receive Date: 20191018
  Receipt Date: 20191231
  Transmission Date: 20200122
  Serious: Yes (Other)
  Sender: FDA-Public Use
  Company Number: CH-JNJFOC-20191022115

PATIENT
  Age: 62 Year
  Sex: Male

DRUGS (5)
  1. ENBREL [Concomitant]
     Active Substance: ETANERCEPT
  2. MABTHERA [Concomitant]
     Active Substance: RITUXIMAB
     Indication: POLYARTHRITIS
  3. METHOTREXATE. [Concomitant]
     Active Substance: METHOTREXATE
     Indication: POLYARTHRITIS
  4. ARAVA [Concomitant]
     Active Substance: LEFLUNOMIDE
     Indication: POLYARTHRITIS
  5. RIVAROXABAN [Suspect]
     Active Substance: RIVAROXABAN
     Indication: PULMONARY EMBOLISM
     Dosage: 20 MG, QD
     Route: 048
     Dates: start: 201904

REACTIONS (1)
  - Thrombophlebitis superficial [Unknown]

NARRATIVE: CASE EVENT DATE: 201909
